FAERS Safety Report 12173609 (Version 1)
Quarter: 2016Q1

REPORT INFORMATION
  Report Type: Spontaneous
  Country: US (occurrence: None)
  Receive Date: 20160311
  Receipt Date: 20160311
  Transmission Date: 20160526
  Serious: Yes (Disabling)
  Sender: FDA-Public Use
  Company Number: None

PATIENT
  Age: 58 Year
  Sex: Female
  Weight: 61.24 kg

DRUGS (5)
  1. MEDROXYPROGES [Concomitant]
  2. BACLOFEN. [Suspect]
     Active Substance: BACLOFEN
     Indication: BACK INJURY
     Dosage: 1 TABLET 3X DAY THREE TIMES DAILY ORAL
     Route: 048
     Dates: start: 20150815, end: 20151215
  3. HYDROCODONE-ACETAMINOPEHN [Concomitant]
  4. GREEN SOURCE MULTI-VITAMIN [Concomitant]
  5. ESTRADIOL. [Concomitant]
     Active Substance: ESTRADIOL

REACTIONS (3)
  - Impaired driving ability [None]
  - Pain [None]
  - Vision blurred [None]

NARRATIVE: CASE EVENT DATE: 20150815
